FAERS Safety Report 11671894 (Version 1)
Quarter: 2015Q4

REPORT INFORMATION
  Report Type: Spontaneous
  Country: US (occurrence: None)
  Receive Date: 20151027
  Receipt Date: 20151027
  Transmission Date: 20160304
  Serious: Yes (Death)
  Sender: FDA-Public Use
  Company Number: None

PATIENT
  Sex: Male

DRUGS (1)
  1. TIKOSYN [Suspect]
     Active Substance: DOFETILIDE
     Dosage: 1 CAPSULE
     Route: 048
     Dates: start: 20150116, end: 20150926

REACTIONS (1)
  - Death [None]

NARRATIVE: CASE EVENT DATE: 20150926
